FAERS Safety Report 21550812 (Version 1)
Quarter: 2022Q4

REPORT INFORMATION
  Report Type: Spontaneous
  Country: AR (occurrence: AR)
  Receive Date: 20221103
  Receipt Date: 20221103
  Transmission Date: 20230112
  Serious: Yes (Other)
  Sender: FDA-Public Use
  Company Number: AR-TAKEDA-2022TUS080281

PATIENT
  Sex: Male

DRUGS (1)
  1. MESALAMINE [Suspect]
     Active Substance: MESALAMINE
     Indication: Product used for unknown indication
     Dosage: 800 MILLIGRAM, TID
     Route: 065

REACTIONS (3)
  - Haematochezia [Unknown]
  - Drug effect less than expected [Unknown]
  - Pain [Unknown]
